FAERS Safety Report 9862761 (Version 1)
Quarter: 2014Q1

REPORT INFORMATION
  Report Type: Spontaneous
  Country: GB (occurrence: None)
  Receive Date: 20140130
  Receipt Date: 20140130
  Transmission Date: 20141002
  Serious: Yes (Other)
  Sender: FDA-Public Use
  Company Number: TPU2014-00025

PATIENT
  Sex: Male

DRUGS (1)
  1. VERSATIS [Suspect]
     Indication: PRODUCT USED FOR UNKNOWN INDICATION
     Dosage: 3 PLASTER, 1 IN 1 D, TOPICAL
     Route: 061

REACTIONS (1)
  - Atrial fibrillation [None]
